FAERS Safety Report 7091062-4 (Version None)
Quarter: 2010Q4

REPORT INFORMATION
  Report Type: 
  Country: None (occurrence: None)
  Receive Date: 20101109
  Receipt Date: 20101027
  Transmission Date: 20110411
  Serious: Yes (Other)
  Sender: FDA-Public Use
  Company Number: PHHY2010CA55977

PATIENT
  Sex: Female

DRUGS (9)
  1. ACLASTA [Suspect]
     Indication: OSTEOPOROSIS
     Dosage: 5 MG
     Dates: start: 20100806
  2. CORTIZONE [Concomitant]
  3. COUMADIN [Concomitant]
     Dosage: DAILY
  4. ATACAND [Concomitant]
  5. NORVASC [Concomitant]
  6. LIPID MICRO ARC [Concomitant]
  7. DITROPAN [Concomitant]
  8. CALCIUM WITH VITAMIN D [Concomitant]
  9. ATIVAN [Concomitant]

REACTIONS (9)
  - ACTIVITIES OF DAILY LIVING IMPAIRED [None]
  - BACK PAIN [None]
  - DECREASED APPETITE [None]
  - MUSCULOSKELETAL STIFFNESS [None]
  - MYALGIA [None]
  - NECK PAIN [None]
  - POLYMYALGIA RHEUMATICA [None]
  - RED BLOOD CELL SEDIMENTATION RATE INCREASED [None]
  - URINARY TRACT INFECTION [None]
